FAERS Safety Report 9823214 (Version 3)
Quarter: 2015Q3

REPORT INFORMATION
  Report Type: Spontaneous
  Country: US (occurrence: US)
  Receive Date: 20140116
  Receipt Date: 20150807
  Transmission Date: 20151125
  Serious: Yes (Other)
  Sender: FDA-Public Use
  Company Number: US-GILEAD-2011-0036127

PATIENT
  Age: 56 Year
  Sex: Male
  Weight: 86.64 kg

DRUGS (17)
  1. LETAIRIS [Suspect]
     Active Substance: AMBRISENTAN
     Indication: PULMONARY HYPERTENSION
     Route: 048
     Dates: start: 20110119, end: 20110131
  2. LETAIRIS [Suspect]
     Active Substance: AMBRISENTAN
     Indication: HEART DISEASE CONGENITAL
  3. ADVAIR DISKUS [Concomitant]
     Active Substance: FLUTICASONE PROPIONATE\SALMETEROL XINAFOATE
  4. METOPROLOL TARTRATE. [Concomitant]
     Active Substance: METOPROLOL TARTRATE
  5. ASPIRIN. [Concomitant]
     Active Substance: ASPIRIN
  6. CHOLESTOFF [Concomitant]
  7. VITAMIN D [Concomitant]
     Active Substance: CHOLECALCIFEROL
  8. LETAIRIS [Suspect]
     Active Substance: AMBRISENTAN
     Indication: ATRIAL TACHYCARDIA
  9. LORAZEPAM. [Concomitant]
     Active Substance: LORAZEPAM
  10. OXYGEN. [Concomitant]
     Active Substance: OXYGEN
  11. LISINOPRIL. [Concomitant]
     Active Substance: LISINOPRIL
  12. ALDACTONE [Concomitant]
     Active Substance: SPIRONOLACTONE
  13. LASIX [Concomitant]
     Active Substance: FUROSEMIDE
  14. VENTOLIN [Concomitant]
     Active Substance: ALBUTEROL SULFATE
  15. ADCIRCA [Concomitant]
     Active Substance: TADALAFIL
  16. ZOCOR [Concomitant]
     Active Substance: SIMVASTATIN
  17. TRAMADOL. [Concomitant]
     Active Substance: TRAMADOL

REACTIONS (4)
  - Paraesthesia oral [Recovered/Resolved]
  - Swollen tongue [Recovered/Resolved]
  - Blood pressure increased [Recovered/Resolved]
  - Joint swelling [Unknown]
